FAERS Safety Report 16689886 (Version 2)
Quarter: 2019Q3

REPORT INFORMATION
  Report Type: Spontaneous
  Country: US (occurrence: US)
  Receive Date: 20190809
  Receipt Date: 20190820
  Transmission Date: 20191004
  Serious: No
  Sender: FDA-Public Use
  Company Number: US-SHIRE-US201925398

PATIENT
  Sex: Male

DRUGS (1)
  1. GATTEX [Suspect]
     Active Substance: TEDUGLUTIDE\WATER
     Indication: PRODUCT USED FOR UNKNOWN INDICATION
     Dosage: 0.135 (UNIT UNKNOWN)
     Route: 058

REACTIONS (3)
  - Weight increased [Not Recovered/Not Resolved]
  - Faeces hard [Unknown]
  - Dyspnoea [Unknown]
